FAERS Safety Report 9052231 (Version 3)
Quarter: 2013Q1

REPORT INFORMATION
  Report Type: Spontaneous
  Country: BR (occurrence: BR)
  Receive Date: 20130206
  Receipt Date: 20130307
  Transmission Date: 20140127
  Serious: Yes (Other)
  Sender: FDA-Public Use
  Company Number: PHHY2013BR010874

PATIENT
  Age: 46 None
  Sex: Female
  Weight: 59 kg

DRUGS (11)
  1. EXJADE [Suspect]
     Indication: SERUM FERRITIN INCREASED
     Dosage: 2 DF (500MG), A DAY
     Route: 048
     Dates: start: 20080530
  2. TRAMAL [Concomitant]
     Indication: ARTHRALGIA
     Dosage: 3 DF DAILY
     Route: 048
  3. HYDREA [Concomitant]
     Indication: TRANSFUSION
     Dosage: 3 DF DAILY
     Route: 048
     Dates: start: 200805
  4. HYDREA [Concomitant]
     Indication: SICKLE CELL ANAEMIA
  5. FOLIC ACID [Concomitant]
     Indication: IRON DEFICIENCY
     Dosage: 2 DF DAILY
     Route: 048
  6. TRAMADOL [Concomitant]
     Indication: PAIN
     Dosage: UNK UKN, UNK
  7. IBIRIDIUM [Concomitant]
     Indication: URINE OUTPUT DECREASED
     Dosage: 1 DFDAILY
     Route: 048
  8. FLUROXEMIDA [Concomitant]
     Dosage: UNK UKN, UNK
  9. SODIUM [Concomitant]
     Dosage: UNK UKN, UNK
  10. FUROSEMIDE [Concomitant]
     Dosage: 1 DF DAILY
     Route: 048
  11. SODIUM BICARBONATE [Concomitant]
     Dosage: 1 G DAILY
     Route: 048

REACTIONS (9)
  - Pyelonephritis [Recovering/Resolving]
  - Urinary tract infection [Recovering/Resolving]
  - Serum ferritin increased [Recovering/Resolving]
  - Blood creatinine increased [Not Recovered/Not Resolved]
  - Back pain [Not Recovered/Not Resolved]
  - Depressed mood [Recovering/Resolving]
  - Pain [Recovering/Resolving]
  - Arthralgia [Recovering/Resolving]
  - Pyrexia [Not Recovered/Not Resolved]
